FAERS Safety Report 18570666 (Version 1)
Quarter: 2020Q4

REPORT INFORMATION
  Report Type: Spontaneous
  Country: US (occurrence: US)
  Receive Date: 20201202
  Receipt Date: 20201202
  Transmission Date: 20210114
  Serious: Yes (Hospitalization)
  Sender: FDA-Public Use
  Company Number: None

PATIENT
  Age: 61 Year
  Sex: Male

DRUGS (10)
  1. PROMTHAZINE [Concomitant]
  2. ONDANSETRON [Concomitant]
     Active Substance: ONDANSETRON
  3. LEVETRIACETAM [Concomitant]
     Active Substance: LEVETIRACETAM
  4. DEXAMETHASONE. [Concomitant]
     Active Substance: DEXAMETHASONE
  5. PROCHLORPERAZINE. [Concomitant]
     Active Substance: PROCHLORPERAZINE
  6. HUMIRA [Suspect]
     Active Substance: ADALIMUMAB
     Indication: CROHN^S DISEASE
     Dosage: ?          OTHER FREQUENCY:EVERY 7 DAYS;?
     Route: 058
     Dates: start: 20190215
  7. BUDESONIDE. [Concomitant]
     Active Substance: BUDESONIDE
  8. AZATHIOPRINE. [Concomitant]
     Active Substance: AZATHIOPRINE
  9. SUMATRIPTAN. [Concomitant]
     Active Substance: SUMATRIPTAN
  10. PANTOPRAZOLE [Concomitant]
     Active Substance: PANTOPRAZOLE

REACTIONS (2)
  - Hospitalisation [None]
  - Therapy interrupted [None]
